FAERS Safety Report 14628179 (Version 1)
Quarter: 2018Q1

REPORT INFORMATION
  Report Type: Spontaneous
  Country: US (occurrence: US)
  Receive Date: 20180312
  Receipt Date: 20180312
  Transmission Date: 20180509
  Serious: No
  Sender: FDA-Public Use
  Company Number: US-ALLERGAN-1734663US

PATIENT
  Sex: Female

DRUGS (1)
  1. ESTRACE [Suspect]
     Active Substance: ESTRADIOL
     Indication: VULVOVAGINAL DISORDER
     Dosage: UNK
     Route: 067

REACTIONS (4)
  - Fungal infection [Unknown]
  - Application site pain [Unknown]
  - Application site discomfort [Unknown]
  - Product administered at inappropriate site [Unknown]
